FAERS Safety Report 15853284 (Version 1)
Quarter: 2019Q1

REPORT INFORMATION
  Report Type: Spontaneous
  Country: US (occurrence: US)
  Receive Date: 20190120
  Receipt Date: 20190120
  Transmission Date: 20190417
  Serious: Yes (Hospitalization, Disabling)
  Sender: FDA-Public Use
  Company Number: None

PATIENT
  Sex: Female
  Weight: 99 kg

DRUGS (10)
  1. CALCIUM [Concomitant]
     Active Substance: CALCIUM
  2. XARELTO [Concomitant]
     Active Substance: RIVAROXABAN
  3. BUPROPION. [Concomitant]
     Active Substance: BUPROPION
  4. ALRAZOLA M [Concomitant]
  5. VITAMIN D [Concomitant]
     Active Substance: CHOLECALCIFEROL
  6. METROPROLOL [Concomitant]
     Active Substance: METOPROLOL
  7. OXYCODONE [Concomitant]
     Active Substance: OXYCODONE
  8. MULTIVITAMIN [Concomitant]
     Active Substance: VITAMINS
  9. GABAPENTIN. [Concomitant]
     Active Substance: GABAPENTIN
  10. PROLIA [Suspect]
     Active Substance: DENOSUMAB
     Indication: OSTEOPOROSIS
     Dosage: ?          OTHER STRENGTH:BY PATIENTS WEIGHT;QUANTITY:1 INJECTION(S);OTHER FREQUENCY:EVERY 6 MONTHS;?
     Route: 042
     Dates: start: 20170920, end: 20180226

REACTIONS (12)
  - Alopecia [None]
  - Spinal fracture [None]
  - Rib fracture [None]
  - Skin infection [None]
  - Jaw disorder [None]
  - Pneumonia [None]
  - Bronchitis [None]
  - Pain [None]
  - Immune system disorder [None]
  - Clostridium difficile infection [None]
  - Atrial fibrillation [None]
  - Urinary tract infection [None]
